FAERS Safety Report 26049242 (Version 1)
Quarter: 2025Q4

REPORT INFORMATION
  Report Type: Report from Study
  Country: JP (occurrence: JP)
  Receive Date: 20251115
  Receipt Date: 20251115
  Transmission Date: 20260117
  Serious: Yes (Hospitalization, Other)
  Sender: AMGEN
  Company Number: JP-AMGEN-JPNSL2025224164

PATIENT

DRUGS (1)
  1. IMDELLTRA [Suspect]
     Active Substance: TARLATAMAB-DLLE
     Indication: Small cell lung cancer
     Dosage: UNK
     Route: 065

REACTIONS (5)
  - Cytokine storm [Unknown]
  - Interstitial lung disease [Unknown]
  - Performance status decreased [Unknown]
  - Condition aggravated [Unknown]
  - Off label use [Unknown]
